FAERS Safety Report 6434940-9 (Version None)
Quarter: 2009Q4

REPORT INFORMATION
  Report Type: 
  Country: None (occurrence: None)
  Receive Date: 20091110
  Receipt Date: 20090915
  Transmission Date: 20100525
  Serious: Yes (Hospitalization)
  Sender: FDA-Public Use
  Company Number: FR-PFIZER INC-2009292110

PATIENT
  Age: 54 Year
  Sex: Male

DRUGS (4)
  1. FLUOROURACIL [Suspect]
     Indication: COLORECTAL CANCER METASTATIC
     Dosage: 800 + 4800 MG
     Dates: start: 20070321, end: 20070502
  2. IRINOTECAN HCL [Suspect]
     Indication: COLORECTAL CANCER METASTATIC
     Dosage: 520 MG, 1X/DAY
     Dates: start: 20070321, end: 20070502
  3. FOLINIC ACID [Suspect]
     Indication: COLORECTAL CANCER METASTATIC
     Dosage: 800 MG, 1X/DAY
     Dates: start: 20070321, end: 20070502
  4. AVASTIN [Suspect]
     Indication: COLORECTAL CANCER METASTATIC
     Dosage: 425 MG, 1X/DAY
     Dates: start: 20070321, end: 20070502

REACTIONS (1)
  - HYPERTENSION [None]
